FAERS Safety Report 11940084 (Version 3)
Quarter: 2016Q1

REPORT INFORMATION
  Report Type: Spontaneous
  Country: RO (occurrence: RO)
  Receive Date: 20160122
  Receipt Date: 20160318
  Transmission Date: 20160526
  Serious: Yes (Hospitalization, Other)
  Sender: FDA-Public Use
  Company Number: RO-PFIZER INC-2016029097

PATIENT
  Age: 81 Year
  Sex: Female

DRUGS (2)
  1. NORVASC [Suspect]
     Active Substance: AMLODIPINE BESYLATE
     Indication: HYPERTENSION
     Dosage: 5 MG, 1X/DAY, EVENING
     Route: 048
     Dates: start: 20160109, end: 20160118
  2. PRESTARIUM /00790701/ [Suspect]
     Active Substance: PERINDOPRIL
     Indication: HYPERTENSION
     Dosage: UNK
     Route: 048
     Dates: start: 20160109

REACTIONS (3)
  - Urticaria [Not Recovered/Not Resolved]
  - Angioedema [Unknown]
  - Eczema [Unknown]

NARRATIVE: CASE EVENT DATE: 20160110
